FAERS Safety Report 9563253 (Version 1)
Quarter: 2013Q3

REPORT INFORMATION
  Report Type: Spontaneous
  Country: US (occurrence: US)
  Receive Date: 20130927
  Receipt Date: 20130927
  Transmission Date: 20140515
  Serious: Yes (Death, Other)
  Sender: FDA-Public Use
  Company Number: US-CUBIST PHARMACEUTICAL, INC.-2013CBST000875

PATIENT
  Sex: 0

DRUGS (6)
  1. CUBICIN [Suspect]
     Indication: ENDOCARDITIS
     Dosage: 6 MG/KG, UNK, (DAYS 3-6)
     Route: 065
  2. CUBICIN [Suspect]
     Indication: STAPHYLOCOCCAL BACTERAEMIA
     Dosage: 10 MG/KG, UNK, (DAYS 7-9)
     Route: 065
  3. CUBICIN [Suspect]
     Indication: OSTEOMYELITIS
     Dosage: 10 MG/KG, UNK, (DAYS 10-17)
  4. CEFTAROLINE FOSAMIL [Suspect]
     Indication: ENDOCARDITIS
     Dosage: 400 UNK, Q8H, (D 10-17)
     Route: 065
  5. CEFTAROLINE FOSAMIL [Suspect]
     Indication: STAPHYLOCOCCAL BACTERAEMIA
  6. CEFTAROLINE FOSAMIL [Suspect]
     Indication: OSTEOMYELITIS

REACTIONS (2)
  - Death [Fatal]
  - Treatment failure [Unknown]
